FAERS Safety Report 6788407-9 (Version None)
Quarter: 2010Q2

REPORT INFORMATION
  Report Type: 
  Country: None (occurrence: None)
  Receive Date: 20100623
  Receipt Date: 20080226
  Transmission Date: 20101027
  Serious: No
  Sender: FDA-Public Use
  Company Number: US-PFIZER INC-2008018815

PATIENT
  Sex: Female

DRUGS (2)
  1. DIFLUCAN [Suspect]
     Indication: ENCEPHALITIS
     Route: 048
     Dates: start: 20060901, end: 20070101
  2. DIFLUCAN [Suspect]
     Indication: MENINGITIS
     Route: 048
     Dates: start: 20080221

REACTIONS (4)
  - MALAISE [None]
  - NIGHT SWEATS [None]
  - PYREXIA [None]
  - VOMITING [None]
